FAERS Safety Report 25452869 (Version 2)
Quarter: 2025Q3

REPORT INFORMATION
  Report Type: Spontaneous
  Country: US (occurrence: US)
  Receive Date: 20250618
  Receipt Date: 20250730
  Transmission Date: 20251020
  Serious: No
  Sender: Kenvue
  Company Number: US-KENVUE-20250509282

PATIENT
  Sex: Female

DRUGS (6)
  1. PEPCID AC [Suspect]
     Active Substance: FAMOTIDINE
     Indication: Gastrointestinal disorder
     Dosage: 1 DOSAGE FORM (20 MG), ONCE A DAY
     Route: 048
     Dates: start: 20250115, end: 20250520
  2. PEPCID AC [Suspect]
     Active Substance: FAMOTIDINE
     Indication: Dyspepsia
  3. VALSARTAN AND HYDROCHLOROTHIAZIDE [Concomitant]
     Active Substance: HYDROCHLOROTHIAZIDE\VALSARTAN
     Indication: Blood pressure increased
     Route: 065
  4. ATORVASTATIN [Concomitant]
     Active Substance: ATORVASTATIN
     Indication: Blood cholesterol
     Route: 065
     Dates: start: 2020
  5. COLACE [Concomitant]
     Active Substance: DOCUSATE SODIUM
     Indication: Laxative supportive care
     Route: 065
  6. VITAMIN D3 [Concomitant]
     Active Substance: CHOLECALCIFEROL
     Indication: Vitamin supplementation
     Route: 065

REACTIONS (2)
  - Alopecia [Recovering/Resolving]
  - Product use in unapproved indication [Unknown]

NARRATIVE: CASE EVENT DATE: 20250101
